FAERS Safety Report 14151799 (Version 4)
Quarter: 2017Q4

REPORT INFORMATION
  Report Type: Spontaneous
  Country: IT (occurrence: IT)
  Receive Date: 20171102
  Receipt Date: 20171229
  Transmission Date: 20180321
  Serious: Yes (Death, Hospitalization)
  Sender: FDA-Public Use
  Company Number: IT-ROCHE-2016246

PATIENT
  Age: 52 Year
  Sex: Male

DRUGS (11)
  1. ENDOXAN BAXTER [Suspect]
     Active Substance: CYCLOPHOSPHAMIDE
     Indication: B-CELL LYMPHOMA
     Dosage: THREE CYCLES
     Route: 065
     Dates: start: 20170501, end: 20170721
  2. FLUDARABINE [Suspect]
     Active Substance: FLUDARABINE PHOSPHATE
     Indication: B-CELL LYMPHOMA
     Dosage: THREE CYCLES
     Route: 065
     Dates: start: 20170501, end: 20170721
  3. NEO - LOTAN PLUS [Concomitant]
     Indication: HYPERTENSION
     Dosage: PERIOD 1 YEAR
     Route: 048
  4. MIRTAZAPINE. [Suspect]
     Active Substance: MIRTAZAPINE
     Route: 065
  5. MABTHERA [Suspect]
     Active Substance: RITUXIMAB
     Indication: B-CELL LYMPHOMA
     Dosage: THREE CYCLES
     Route: 042
     Dates: start: 20170501, end: 20170721
  6. VYTORIN [Concomitant]
     Active Substance: EZETIMIBE\SIMVASTATIN
     Indication: DYSLIPIDAEMIA
     Dosage: PERIOD 1 YEAR
     Route: 048
  7. LANSOX [Concomitant]
     Active Substance: LANSOPRAZOLE
     Indication: PROPHYLAXIS AGAINST GASTROINTESTINAL ULCER
     Route: 048
  8. DEPAKIN [Concomitant]
     Active Substance: VALPROATE SODIUM
     Indication: BIPOLAR DISORDER
     Dosage: HRONO 500 MG 30 TABLETS PERIOD :10 YEARS
     Route: 048
  9. BACTRIM [Concomitant]
     Active Substance: SULFAMETHOXAZOLE\TRIMETHOPRIM
     Indication: ANTIBIOTIC PROPHYLAXIS
     Route: 048
  10. MIRTAZAPINE. [Suspect]
     Active Substance: MIRTAZAPINE
     Indication: PROGRESSIVE MULTIFOCAL LEUKOENCEPHALOPATHY
     Route: 065
  11. HALDOL DECANOAS [Concomitant]
     Active Substance: HALOPERIDOL DECANOATE
     Indication: BIPOLAR DISORDER
     Dosage: 50 MG/ML 1 X 3 ML VIAL PERIOD: 10 YEARS
     Route: 030

REACTIONS (5)
  - Neutropenia [Fatal]
  - Progressive multifocal leukoencephalopathy [Fatal]
  - Sepsis [Fatal]
  - JC virus test positive [Fatal]
  - Respiratory failure [Fatal]

NARRATIVE: CASE EVENT DATE: 201708
